FAERS Safety Report 23957799 (Version 1)
Quarter: 2024Q2

REPORT INFORMATION
  Report Type: Spontaneous
  Country: US (occurrence: US)
  Receive Date: 20240610
  Receipt Date: 20240610
  Transmission Date: 20240716
  Serious: Yes (Death, Other)
  Sender: FDA-Public Use
  Company Number: US-TAKEDA-2024TUS057491

PATIENT
  Age: 69 Year
  Sex: Male

DRUGS (2)
  1. LIVTENCITY [Suspect]
     Active Substance: MARIBAVIR
     Indication: Hepatic cirrhosis
     Dosage: 2 DOSAGE FORM, BID
     Route: 065
     Dates: start: 20240523
  2. LIVTENCITY [Suspect]
     Active Substance: MARIBAVIR
     Indication: Liver transplant

REACTIONS (1)
  - Death [Fatal]
